FAERS Safety Report 18067978 (Version 1)
Quarter: 2020Q3

REPORT INFORMATION
  Report Type: Report from Study
  Country: IN (occurrence: IN)
  Receive Date: 20200724
  Receipt Date: 20200724
  Transmission Date: 20201103
  Serious: Yes (Other)
  Sender: FDA-Public Use
  Company Number: NVSC2020IN206366

PATIENT
  Age: 44 Year
  Sex: Female

DRUGS (1)
  1. TASIGNA [Suspect]
     Active Substance: NILOTINIB
     Indication: CHRONIC MYELOID LEUKAEMIA
     Dosage: 400 MG, BID
     Route: 048
     Dates: start: 201811, end: 202006

REACTIONS (2)
  - Cytogenetic analysis abnormal [Unknown]
  - Splenomegaly [Unknown]

NARRATIVE: CASE EVENT DATE: 202006
